FAERS Safety Report 10432461 (Version 1)
Quarter: 2014Q3

REPORT INFORMATION
  Report Type: Spontaneous
  Country: US (occurrence: None)
  Receive Date: 20140904
  Receipt Date: 20140904
  Transmission Date: 20150326
  Serious: Yes (Disabling)
  Sender: FDA-Public Use
  Company Number: None

PATIENT
  Age: 59 Year
  Sex: Female
  Weight: 67.13 kg

DRUGS (2)
  1. PROLIA [Suspect]
     Active Substance: DENOSUMAB
     Indication: OSTEOPOROSIS
     Dosage: PROLIA EVERY 6 MONTHS INTO A VEIN
     Route: 042
     Dates: start: 201310, end: 201409
  2. PROLIA [Suspect]
     Active Substance: DENOSUMAB
     Indication: PATELLA FRACTURE
     Dosage: PROLIA EVERY 6 MONTHS INTO A VEIN
     Route: 042
     Dates: start: 201310, end: 201409

REACTIONS (6)
  - Asthma [None]
  - Dermatitis [None]
  - Urinary tract infection [None]
  - Fatigue [None]
  - Alopecia [None]
  - Neuropathy peripheral [None]
